FAERS Safety Report 9106953 (Version 2)
Quarter: 2014Q2

REPORT INFORMATION
  Report Type: Spontaneous
  Country: JP (occurrence: JP)
  Receive Date: 20130221
  Receipt Date: 20140408
  Transmission Date: 20141212
  Serious: Yes (Hospitalization)
  Sender: FDA-Public Use
  Company Number: JP-009507513-1302JPN008414

PATIENT
  Age: 17 Year
  Sex: Male
  Weight: 57 kg

DRUGS (15)
  1. TEMODAL [Suspect]
     Indication: ANAPLASTIC ASTROCYTOMA
     Dosage: 75 MG/M2, QD
     Route: 048
     Dates: start: 20110310, end: 20110314
  2. TEMODAL [Suspect]
     Dosage: 75 MG/M2, QD
     Route: 048
     Dates: start: 20110323, end: 20110427
  3. TEMODAL [Suspect]
     Dosage: 150 MG/M2, QD
     Route: 048
     Dates: start: 20110527, end: 20110531
  4. TEMODAL [Suspect]
     Dosage: 200 MG/M2, QD
     Route: 048
     Dates: start: 20110624, end: 20110628
  5. TEMODAL [Suspect]
     Dosage: 200 MG/M2, QD
     Route: 048
     Dates: start: 20110722, end: 20110726
  6. TEMODAL [Suspect]
     Dosage: 200 MG/M2, QD
     Route: 048
     Dates: start: 20110825, end: 20110829
  7. TEMODAL [Suspect]
     Dosage: 200 MG/M2, QD
     Route: 048
     Dates: start: 20110923, end: 20110927
  8. TEMODAL [Suspect]
     Dosage: 200 MG/M2, QD
     Route: 048
     Dates: start: 20111022, end: 20111026
  9. TEMODAL [Suspect]
     Dosage: 200 MG/M2, QD
     Route: 048
     Dates: start: 20111118, end: 20111122
  10. TEMODAL [Suspect]
     Dosage: 200 MG/M2, QD
     Route: 048
     Dates: start: 20111220, end: 20111224
  11. TEMODAL [Suspect]
     Dosage: 200 MG/M2, QD
     Route: 048
     Dates: start: 20120116, end: 20120120
  12. BAKTAR [Concomitant]
     Indication: ANTIFUNGAL PROPHYLAXIS
     Dosage: UNK
     Route: 048
     Dates: start: 20110310, end: 20110425
  13. NAVOBAN [Concomitant]
     Indication: PROPHYLAXIS
     Dosage: ONE DAY^S DOSAGE WAS UNKNOWN
     Route: 048
     Dates: start: 20110310, end: 20120421
  14. DEPAKENE [Concomitant]
     Indication: PROPHYLAXIS
     Dosage: ONE DAY^S DOSAGE WAS UNKNOWN
     Route: 048
  15. MAGMITT [Concomitant]
     Indication: PROPHYLAXIS
     Dosage: ONE DAY^S DOSAGE WAS UNKNOWN
     Route: 048
     Dates: start: 20110310, end: 20120328

REACTIONS (3)
  - Appendicitis [Recovering/Resolving]
  - Nausea [Recovering/Resolving]
  - Vomiting [Recovering/Resolving]
